FAERS Safety Report 13796307 (Version 1)
Quarter: 2017Q3

REPORT INFORMATION
  Report Type: Report from Study
  Country: US (occurrence: US)
  Receive Date: 20170726
  Receipt Date: 20170726
  Transmission Date: 20171127
  Serious: No
  Sender: FDA-Public Use
  Company Number: PHEH2017US022795

PATIENT
  Sex: Male
  Weight: 23.5 kg

DRUGS (1)
  1. OMNITROPE [Suspect]
     Active Substance: SOMATROPIN
     Indication: GROWTH HORMONE DEFICIENCY
     Dosage: 5.8 MG/VIAL AND DILUENT, 12 UNITS X 7 DAYS A WEEK
     Route: 058
     Dates: start: 201705

REACTIONS (3)
  - Eye colour change [Recovered/Resolved]
  - Headache [Recovered/Resolved]
  - Hypersensitivity [Unknown]
